FAERS Safety Report 5692734-6 (Version None)
Quarter: 2008Q2

REPORT INFORMATION
  Report Type: 
  Country: None (occurrence: None)
  Receive Date: 20080401
  Receipt Date: 20080319
  Transmission Date: 20081010
  Serious: Yes (Other)
  Sender: FDA-Public Use
  Company Number: DSA_31058_2007

PATIENT
  Sex: Female

DRUGS (26)
  1. CARDIZEM [Suspect]
     Indication: HYPERTENSION
     Dosage: (DF)
  2. CARDIZEM CD [Suspect]
     Indication: HYPERTENSION
     Dosage: (180 MG QD ORAL)
     Route: 048
     Dates: start: 19980101
  3. ATENOL [Concomitant]
  4. HYDROCHLOROTHIAZIDE [Concomitant]
  5. XANAX [Concomitant]
  6. PAXIL [Concomitant]
  7. TRAZODONE HCL [Concomitant]
  8. AMBIEN [Concomitant]
  9. LORCET [Concomitant]
  10. PENICILLIN VK [Concomitant]
  11. ACETASOL HC [Concomitant]
  12. ALUMINUM CL SOL [Concomitant]
  13. ZOVIRAX [Concomitant]
  14. COTRIMOXAZOLE [Concomitant]
  15. TERCONAZOLE [Concomitant]
  16. METRONIDAZOLE [Concomitant]
  17. PRAVACHOL [Concomitant]
  18. LUNESTA [Concomitant]
  19. ACETAMINOPHEN AND HYDROCODONE BITARTRATE [Concomitant]
  20. PRAVASTATIN [Concomitant]
  21. LEXAPRO [Concomitant]
  22. BUPROPION HCL [Concomitant]
  23. DRYSOL [Concomitant]
  24. CLARINEX [Concomitant]
  25. HYDROQUINONE [Concomitant]
  26. BUPROPION HCL [Concomitant]

REACTIONS (7)
  - ANAEMIA [None]
  - DYSPNOEA [None]
  - FATIGUE [None]
  - GENERAL PHYSICAL HEALTH DETERIORATION [None]
  - GINGIVAL HYPERTROPHY [None]
  - INSOMNIA [None]
  - OCULAR ICTERUS [None]
